FAERS Safety Report 25746616 (Version 1)
Quarter: 2025Q3

REPORT INFORMATION
  Report Type: Spontaneous
  Country: US (occurrence: US)
  Receive Date: 20250901
  Receipt Date: 20250901
  Transmission Date: 20251020
  Serious: No
  Sender: STALLERGENES
  Company Number: US-STALCOR-2025-AER-02315

PATIENT
  Age: 5 Year
  Sex: Female

DRUGS (1)
  1. PALFORZIA [Suspect]
     Active Substance: PEANUT
     Indication: Food allergy
     Dosage: REACTIVE DOSE, IDE (4-17) DISPENSED ON 11-JUN-2025
     Route: 048
     Dates: end: 202507

REACTIONS (3)
  - Lip oedema [Not Recovered/Not Resolved]
  - Throat irritation [Not Recovered/Not Resolved]
  - Therapy cessation [Not Recovered/Not Resolved]

NARRATIVE: CASE EVENT DATE: 20250701
